FAERS Safety Report 6994084-4 (Version None)
Quarter: 2010Q3

REPORT INFORMATION
  Report Type: 
  Country: None (occurrence: None)
  Receive Date: 20100917
  Receipt Date: 20070806
  Transmission Date: 20110219
  Serious: Yes (Other)
  Sender: FDA-Public Use
  Company Number: US-ASTRAZENECA-2006UW26721

PATIENT
  Age: 47 Year
  Sex: Male
  Weight: 117.9 kg

DRUGS (30)
  1. SEROQUEL [Suspect]
     Indication: SCHIZOPHRENIA
     Route: 048
     Dates: start: 19990101, end: 20050101
  2. SEROQUEL [Suspect]
     Indication: BIPOLAR I DISORDER
     Route: 048
     Dates: start: 19990101, end: 20050101
  3. SEROQUEL [Suspect]
     Indication: DEPRESSION
     Route: 048
     Dates: start: 19990101, end: 20050101
  4. SEROQUEL [Suspect]
     Indication: COGNITIVE DISORDER
     Route: 048
     Dates: start: 19990101, end: 20050101
  5. SEROQUEL [Suspect]
     Indication: AFFECTIVE DISORDER
     Route: 048
     Dates: start: 19990101, end: 20050101
  6. SEROQUEL [Suspect]
     Route: 048
     Dates: end: 19990101
  7. SEROQUEL [Suspect]
     Route: 048
     Dates: end: 19990101
  8. SEROQUEL [Suspect]
     Route: 048
     Dates: end: 19990101
  9. SEROQUEL [Suspect]
     Route: 048
     Dates: end: 19990101
  10. SEROQUEL [Suspect]
     Route: 048
     Dates: end: 19990101
  11. SEROQUEL [Suspect]
     Dosage: 400MG TO 800MG
     Route: 048
     Dates: start: 20000511
  12. SEROQUEL [Suspect]
     Dosage: 400MG TO 800MG
     Route: 048
     Dates: start: 20000511
  13. SEROQUEL [Suspect]
     Dosage: 400MG TO 800MG
     Route: 048
     Dates: start: 20000511
  14. SEROQUEL [Suspect]
     Dosage: 400MG TO 800MG
     Route: 048
     Dates: start: 20000511
  15. SEROQUEL [Suspect]
     Dosage: 400MG TO 800MG
     Route: 048
     Dates: start: 20000511
  16. ABILIFY [Concomitant]
  17. HALDOL [Concomitant]
  18. RISPERDAL [Concomitant]
  19. THORAZINE [Concomitant]
  20. ZYPREXA [Concomitant]
     Route: 048
     Dates: start: 19980906
  21. CYCLOBENZAPRINE HCL [Concomitant]
     Route: 048
     Dates: start: 20000602
  22. LITHIUM CARBONATE [Concomitant]
     Dosage: 300MG TO 600MG
     Route: 048
     Dates: start: 20000602
  23. ASPIRIN [Concomitant]
     Route: 048
     Dates: start: 20011209
  24. GEMFIBROZIL [Concomitant]
     Route: 048
     Dates: start: 20000603
  25. LISINOPRIL [Concomitant]
     Route: 048
     Dates: start: 19980906
  26. NITROGLYCERIN [Concomitant]
     Indication: CHEST PAIN
     Dosage: 0.4MG TAB EVERY 5 MIN AS NEEDED
     Route: 060
     Dates: start: 20000602
  27. SERTRALINE HYDROCHLORIDE [Concomitant]
     Indication: DEPRESSION
     Route: 048
     Dates: start: 19980906
  28. SIMVASTATIN [Concomitant]
     Route: 048
     Dates: start: 20010207
  29. HYDROXYZINE HCL [Concomitant]
     Indication: ANXIETY
     Dosage: 25MG TO 50 MG EVERY 6 HOURS PRN
     Dates: start: 20000602
  30. BENZTROPINE MESYLATE [Concomitant]
     Dosage: 2 MG PRN
     Route: 048
     Dates: start: 20000602

REACTIONS (4)
  - DIABETES MELLITUS [None]
  - DIABETES MELLITUS INADEQUATE CONTROL [None]
  - DIABETIC COMA [None]
  - TYPE 1 DIABETES MELLITUS [None]
